FAERS Safety Report 9338916 (Version 1)
Quarter: 2013Q2

REPORT INFORMATION
  Report Type: Spontaneous
  Country: SE (occurrence: SE)
  Receive Date: 20130610
  Receipt Date: 20130610
  Transmission Date: 20140414
  Serious: Yes (Other)
  Sender: FDA-Public Use
  Company Number: SE-PFIZER INC-2013173054

PATIENT
  Age: 65 Year
  Sex: Female

DRUGS (1)
  1. CORDARONE [Suspect]
     Dosage: UNK
     Route: 065
     Dates: end: 20130305

REACTIONS (1)
  - Thyroiditis [Unknown]
